FAERS Safety Report 9407101 (Version 1)
Quarter: 2013Q3

REPORT INFORMATION
  Report Type: Report from Study
  Country: US (occurrence: US)
  Receive Date: 20130718
  Receipt Date: 20130718
  Transmission Date: 20140515
  Serious: Yes (Other)
  Sender: FDA-Public Use
  Company Number: US-ASTELLAS-2013US007561

PATIENT
  Sex: Female

DRUGS (4)
  1. MICAFUNGIN INJECTION [Suspect]
     Indication: SYSTEMIC CANDIDA
     Dosage: 100 MG, UID/QD
     Route: 065
  2. VANCOMYCIN [Concomitant]
     Indication: ESCHERICHIA URINARY TRACT INFECTION
     Dosage: UNK
     Route: 065
  3. PIPERACILLIN SODIUM W/TAZOBACTAM SODIUM [Concomitant]
     Indication: ESCHERICHIA URINARY TRACT INFECTION
     Dosage: UNK
     Route: 065
  4. FLUCONAZOLE [Concomitant]
     Indication: CANDIDA INFECTION
     Dosage: 200 MG, UID/QD
     Route: 065

REACTIONS (1)
  - Drug resistance [Unknown]
